FAERS Safety Report 8509757-1 (Version None)
Quarter: 2012Q3

REPORT INFORMATION
  Report Type: 
  Country: None (occurrence: None)
  Receive Date: 20120703
  Receipt Date: 20120620
  Transmission Date: 20120928
  Serious: Yes (Other)
  Sender: FDA-Public Use
  Company Number: 20120407

PATIENT
  Sex: Female

DRUGS (2)
  1. PROCRIT [Concomitant]
  2. VENOFER [Suspect]
     Indication: ANAEMIA
     Dosage: 20 MG/ML

REACTIONS (1)
  - PANCREATITIS [None]
